FAERS Safety Report 5150505-3 (Version None)
Quarter: 2006Q4

REPORT INFORMATION
  Report Type: 
  Country: None (occurrence: None)
  Receive Date: 20061114
  Receipt Date: 20061106
  Transmission Date: 20070319
  Serious: Yes (Hospitalization)
  Sender: FDA-Public Use
  Company Number: DE-GLAXOSMITHKLINE-B0445863A

PATIENT
  Age: 53 Year
  Sex: Female
  Weight: 53 kg

DRUGS (1)
  1. TOPOTECAN [Suspect]
     Indication: OVARIAN CANCER
     Dosage: 6.16MG WEEKLY
     Route: 042
     Dates: start: 20061025

REACTIONS (2)
  - BLOOD GLUCOSE INCREASED [None]
  - DYSPNOEA [None]
